FAERS Safety Report 17754694 (Version 1)
Quarter: 2020Q2

REPORT INFORMATION
  Report Type: Report from Study
  Country: BR (occurrence: BR)
  Receive Date: 20200506
  Receipt Date: 20200506
  Transmission Date: 20200714
  Serious: Yes (Other)
  Sender: FDA-Public Use
  Company Number: BR-AMGEN-BRACT2020049684

PATIENT
  Age: 41 Year
  Sex: Female

DRUGS (1)
  1. PASURTA [Suspect]
     Active Substance: ERENUMAB
     Indication: MIGRAINE
     Dosage: UNK
     Route: 065
     Dates: start: 20200316, end: 20200417

REACTIONS (37)
  - Musculoskeletal discomfort [Recovered/Resolved]
  - Headache [Not Recovered/Not Resolved]
  - Palpitations [Recovered/Resolved]
  - Blood pressure abnormal [Recovered/Resolved]
  - Migraine [Recovered/Resolved]
  - Speech disorder [Unknown]
  - Menstruation irregular [Not Recovered/Not Resolved]
  - Feeling cold [Not Recovered/Not Resolved]
  - Urticaria [Recovered/Resolved]
  - Skin reaction [Unknown]
  - Erythema [Unknown]
  - Nervousness [Unknown]
  - Migraine [Not Recovered/Not Resolved]
  - Hypersensitivity [Unknown]
  - Paraesthesia [Recovered/Resolved]
  - Vomiting [Recovered/Resolved]
  - Hypotension [Unknown]
  - Choking sensation [Recovered/Resolved]
  - Dizziness [Recovered/Resolved]
  - Feeling abnormal [Recovered/Resolved]
  - Scratch [Recovered/Resolved]
  - Blood pressure fluctuation [Not Recovered/Not Resolved]
  - Visual impairment [Recovered/Resolved]
  - Skin burning sensation [Unknown]
  - Swelling [Unknown]
  - Discomfort [Unknown]
  - Malaise [Unknown]
  - Cold sweat [Not Recovered/Not Resolved]
  - Hair texture abnormal [Not Recovered/Not Resolved]
  - Abdominal pain [Recovered/Resolved]
  - Hypertension [Not Recovered/Not Resolved]
  - Nausea [Recovered/Resolved]
  - Heart rate increased [Recovered/Resolved]
  - Alopecia [Not Recovered/Not Resolved]
  - Retching [Not Recovered/Not Resolved]
  - Headache [Recovered/Resolved]
  - Pruritus [Recovered/Resolved]

NARRATIVE: CASE EVENT DATE: 202003
